FAERS Safety Report 8907997 (Version 2)
Quarter: 2012Q4

REPORT INFORMATION
  Report Type: 
  Country: US (occurrence: US)
  Receive Date: 20121114
  Receipt Date: 20121213
  Transmission Date: 20130627
  Serious: Yes (Hospitalization)
  Sender: FDA-Public Use
  Company Number: US-BRISTOL-MYERS SQUIBB COMPANY-17093519

PATIENT
  Age: 66 Year
  Sex: Female
  Weight: 59.86 kg

DRUGS (1)
  1. ORENCIA [Suspect]
     Indication: RHEUMATOID ARTHRITIS
     Dosage: recent dose 11Oct12
     Route: 042
     Dates: start: 2012

REACTIONS (3)
  - Impaired gastric emptying [Unknown]
  - White blood cell count increased [Unknown]
  - Dehydration [Unknown]
